FAERS Safety Report 10652605 (Version 1)
Quarter: 2014Q4

REPORT INFORMATION
  Report Type: Spontaneous
  Country: CA (occurrence: CA)
  Receive Date: 20141215
  Receipt Date: 20141215
  Transmission Date: 20150529
  Serious: Yes (Other)
  Sender: FDA-Public Use
  Company Number: CA-WATSON-2014-26314

PATIENT
  Age: 44 Year
  Sex: Female

DRUGS (8)
  1. AZATHIOPRINE (UNKNOWN) [Interacting]
     Active Substance: AZATHIOPRINE
     Dosage: 50 MG, DAILY
     Route: 065
  2. AZATHIOPRINE (UNKNOWN) [Interacting]
     Active Substance: AZATHIOPRINE
     Dosage: 150 MG, DAILY
     Route: 065
  3. FEBUXOSTAT. [Interacting]
     Active Substance: FEBUXOSTAT
     Indication: IMMUNE-MEDIATED NECROTISING MYOPATHY
     Dosage: 40 MG, DAILY
     Route: 065
  4. METHOTREXATE (METHOTREXATE SODIUM) [Concomitant]
     Active Substance: METHOTREXATE SODIUM
     Indication: IMMUNE-MEDIATED NECROTISING MYOPATHY
     Dosage: UNK
     Route: 065
  5. AZATHIOPRINE (UNKNOWN) [Interacting]
     Active Substance: AZATHIOPRINE
     Dosage: 25 MG, DAILY
     Route: 065
  6. AZATHIOPRINE (UNKNOWN) [Interacting]
     Active Substance: AZATHIOPRINE
     Dosage: 250 MG, DAILY
     Route: 065
  7. AZATHIOPRINE (UNKNOWN) [Suspect]
     Active Substance: AZATHIOPRINE
     Indication: IMMUNE-MEDIATED NECROTISING MYOPATHY
     Dosage: 125 MG, DAILY
     Route: 065
  8. ALLOPURINOL (UNKNOWN) [Interacting]
     Active Substance: ALLOPURINOL
     Indication: IMMUNE-MEDIATED NECROTISING MYOPATHY
     Dosage: 100 MG, DAILY
     Route: 065

REACTIONS (2)
  - Drug reaction with eosinophilia and systemic symptoms [Recovered/Resolved]
  - Drug interaction [Unknown]
